FAERS Safety Report 4658618-7 (Version None)
Quarter: 2005Q2

REPORT INFORMATION
  Report Type: 
  Country: None (occurrence: None)
  Receive Date: 20050511
  Receipt Date: 20041203
  Transmission Date: 20051028
  Serious: Yes (Other)
  Sender: FDA-Public Use
  Company Number: GB-GLAXOSMITHKLINE-B0361036A

PATIENT
  Sex: Male

DRUGS (1)
  1. PAROXETINE HYDROCHLORIDE [Suspect]
     Indication: DEPRESSION
     Route: 065
     Dates: start: 19990501, end: 20040101

REACTIONS (9)
  - AGGRESSION [None]
  - DEPRESSED MOOD [None]
  - DRUG WITHDRAWAL SYNDROME [None]
  - EJACULATION DELAYED [None]
  - HOMICIDAL IDEATION [None]
  - IRRITABILITY [None]
  - LOSS OF CONSCIOUSNESS [None]
  - SLEEP DISORDER [None]
  - SUICIDAL IDEATION [None]
